FAERS Safety Report 10008714 (Version 1)
Quarter: 2014Q1

REPORT INFORMATION
  Report Type: Spontaneous
  Country: US (occurrence: US)
  Receive Date: 20140312
  Receipt Date: 20140312
  Transmission Date: 20141002
  Serious: No
  Sender: FDA-Public Use
  Company Number: US-INCYTE CORPORATION-2012IN000262

PATIENT
  Age: 65 Year
  Sex: Female

DRUGS (5)
  1. JAKAFI [Suspect]
     Indication: POLYCYTHAEMIA VERA
     Dosage: 20 MG, BID
     Route: 048
     Dates: end: 20120126
  2. JAKAFI [Suspect]
     Dosage: 15 MG, BID
     Route: 048
     Dates: start: 201202
  3. TOPROL [Concomitant]
     Dosage: 100 MG, QD (AM)
  4. TOPROL [Concomitant]
     Dosage: 50 MG, QD (PM)
  5. ZETIA [Concomitant]
     Dosage: 10 MG, QD

REACTIONS (1)
  - Blood count abnormal [Unknown]
